FAERS Safety Report 22055226 (Version 2)
Quarter: 2023Q1

REPORT INFORMATION
  Report Type: Spontaneous
  Country: JP (occurrence: JP)
  Receive Date: 20230302
  Receipt Date: 20230322
  Transmission Date: 20230417
  Serious: Yes (Other)
  Sender: FDA-Public Use
  Company Number: JP-AMGEN-JPNSP2023026817

PATIENT
  Age: 80 Year
  Sex: Female
  Weight: 39 kg

DRUGS (1)
  1. BLINCYTO [Suspect]
     Active Substance: BLINATUMOMAB
     Indication: Acute lymphocytic leukaemia
     Dosage: 5 MILLILITER PER HOUR
     Route: 040
     Dates: start: 20230206, end: 20230222

REACTIONS (5)
  - Acute lymphocytic leukaemia [Unknown]
  - Atrial fibrillation [Recovered/Resolved]
  - Blast cell count increased [Unknown]
  - Device infusion issue [Unknown]
  - Off label use [Unknown]

NARRATIVE: CASE EVENT DATE: 20230206
